FAERS Safety Report 11835336 (Version 1)
Quarter: 2015Q4

REPORT INFORMATION
  Report Type: Spontaneous
  Country: IE (occurrence: IE)
  Receive Date: 20151215
  Receipt Date: 20151215
  Transmission Date: 20160305
  Serious: Yes (Hospitalization)
  Sender: FDA-Public Use
  Company Number: IE-009507513-1512IRL005820

PATIENT
  Age: 60 Year
  Sex: Male

DRUGS (3)
  1. HEPARIN SODIUM. [Concomitant]
     Active Substance: HEPARIN SODIUM
     Dosage: UNK
     Dates: start: 20151014
  2. DAPTOMYCIN. [Suspect]
     Active Substance: DAPTOMYCIN
     Indication: STAPHYLOCOCCAL INFECTION
     Dosage: 780 MG, QD
     Route: 042
     Dates: start: 20151014
  3. DAPTOMYCIN. [Suspect]
     Active Substance: DAPTOMYCIN
     Indication: DEVICE RELATED INFECTION

REACTIONS (2)
  - Product use issue [Unknown]
  - Malaise [Unknown]

NARRATIVE: CASE EVENT DATE: 20151014
